FAERS Safety Report 20608320 (Version 1)
Quarter: 2022Q1

REPORT INFORMATION
  Report Type: Spontaneous
  Country: BR (occurrence: BR)
  Receive Date: 20220317
  Receipt Date: 20220317
  Transmission Date: 20220423
  Serious: Yes (Other)
  Sender: FDA-Public Use
  Company Number: BR-INSUD PHARMA-2203BR01021

PATIENT

DRUGS (2)
  1. ACYCLOVIR [Suspect]
     Active Substance: ACYCLOVIR
     Indication: Herpes zoster
     Dosage: 200 MG, EVERY 6 HOURS
     Route: 048
  2. TAMOXIFEN [Concomitant]
     Active Substance: TAMOXIFEN
     Indication: Hormone therapy
     Dosage: 20 MG/DAY

REACTIONS (7)
  - Recall phenomenon [Recovering/Resolving]
  - Breast pain [Recovering/Resolving]
  - Condition aggravated [Recovering/Resolving]
  - Erythema [Recovering/Resolving]
  - Tissue infiltration [Recovering/Resolving]
  - Skin texture abnormal [Recovering/Resolving]
  - Breast discharge [Recovering/Resolving]
